FAERS Safety Report 5930185-7 (Version None)
Quarter: 2008Q4

REPORT INFORMATION
  Report Type: 
  Country: None (occurrence: None)
  Receive Date: 20081024
  Receipt Date: 20081013
  Transmission Date: 20090506
  Serious: Yes (Hospitalization)
  Sender: FDA-Public Use
  Company Number: GB-PFIZER INC-2008087137

PATIENT
  Age: 41 Year
  Sex: Male

DRUGS (4)
  1. VORICONAZOLE [Interacting]
  2. OMEPRAZOLE [Interacting]
  3. ITRACONAZOLE [Suspect]
  4. AMPHOTERICIN B [Concomitant]

REACTIONS (4)
  - DRUG INTERACTION [None]
  - DRUG INTOLERANCE [None]
  - NEUTROPENIA [None]
  - VENTRICULAR DYSFUNCTION [None]
